FAERS Safety Report 9208649 (Version 3)
Quarter: 2013Q2

REPORT INFORMATION
  Report Type: Spontaneous
  Country: DE (occurrence: DE)
  Receive Date: 20130404
  Receipt Date: 20130620
  Transmission Date: 20140414
  Serious: Yes (Hospitalization, Other)
  Sender: FDA-Public Use
  Company Number: DE-AMGEN-DEUSP2013023158

PATIENT
  Age: 80 Year
  Sex: Male

DRUGS (10)
  1. ENBREL [Suspect]
     Indication: RHEUMATOID ARTHRITIS
     Dosage: 50 MG, WEEKLY
     Route: 065
     Dates: start: 20040324, end: 20130212
  2. ENBREL [Suspect]
     Dosage: UNK
  3. PROTAPHANE [Concomitant]
     Dosage: UNK
  4. ACTRAPID                           /00646001/ [Concomitant]
     Dosage: UNK
  5. BELOC-ZOK [Concomitant]
     Dosage: UNK
  6. ASS [Concomitant]
     Dosage: UNK
  7. EXFORGE [Concomitant]
     Dosage: UNK
  8. AMLODIPINE [Concomitant]
     Dosage: UNK
  9. PLAVIX [Concomitant]
     Dosage: UNK
  10. FALITHROM [Concomitant]
     Dosage: UNK

REACTIONS (8)
  - Rheumatoid arthritis [Unknown]
  - Fall [Not Recovered/Not Resolved]
  - Rib fracture [Not Recovered/Not Resolved]
  - Pain [Not Recovered/Not Resolved]
  - Swelling [Not Recovered/Not Resolved]
  - Colon neoplasm [Not Recovered/Not Resolved]
  - Arthropathy [Unknown]
  - Bacteraemia [Unknown]
